FAERS Safety Report 21795899 (Version 1)
Quarter: 2022Q4

REPORT INFORMATION
  Report Type: Report from Study
  Country: US (occurrence: US)
  Receive Date: 20221229
  Receipt Date: 20221229
  Transmission Date: 20230113
  Serious: No
  Sender: FDA-Public Use
  Company Number: US-ABBVIE-4219477

PATIENT
  Sex: Female

DRUGS (1)
  1. HUMIRA [Suspect]
     Active Substance: ADALIMUMAB
     Indication: Product used for unknown indication
     Dosage: THE ONSET OF  HUMIRA WEAR OFF A FEW DAYS BEFORE NEXT INJECTION WAS DUE EVERY MONTH WAS 2022
     Route: 058
     Dates: start: 2022

REACTIONS (1)
  - Therapeutic response shortened [Recovered/Resolved]
